FAERS Safety Report 16156332 (Version 1)
Quarter: 2019Q2

REPORT INFORMATION
  Report Type: Spontaneous
  Country: FR (occurrence: FR)
  Receive Date: 20190404
  Receipt Date: 20190404
  Transmission Date: 20190711
  Serious: Yes (Hospitalization, Other)
  Sender: FDA-Public Use
  Company Number: FR-SHILPA MEDICARE LIMITED-SML-FR-2019-00096

PATIENT
  Age: 45 Year
  Sex: Male

DRUGS (6)
  1. STIVARGA [Concomitant]
     Active Substance: REGORAFENIB
     Indication: GASTROINTESTINAL CARCINOMA
     Dosage: 160 MG, QD
     Route: 048
     Dates: start: 20180905, end: 20181104
  2. IMATINIB, UNKNOWN [Suspect]
     Active Substance: IMATINIB
     Indication: GASTROINTESTINAL CARCINOMA
     Dosage: UNK
     Route: 048
  3. SUTENT [Suspect]
     Active Substance: SUNITINIB MALATE
     Indication: GASTROINTESTINAL CARCINOMA
     Dosage: UNK
     Route: 048
  4. TASIGNA [Concomitant]
     Active Substance: NILOTINIB
     Indication: GASTROINTESTINAL CARCINOMA
     Dosage: UNK
     Route: 048
  5. IMATINIB, UNKNOWN [Suspect]
     Active Substance: IMATINIB
     Indication: GASTROINTESTINAL CARCINOMA
     Route: 048
  6. CABOMETYX [Suspect]
     Active Substance: CABOZANTINIB S-MALATE
     Indication: GASTROINTESTINAL CARCINOMA
     Dosage: UNK UNK, QD
     Route: 048
     Dates: start: 201711, end: 20180820

REACTIONS (2)
  - Behaviour disorder [Not Recovered/Not Resolved]
  - Altered state of consciousness [Not Recovered/Not Resolved]

NARRATIVE: CASE EVENT DATE: 20180818
